FAERS Safety Report 8088750-X (Version None)
Quarter: 2012Q1

REPORT INFORMATION
  Report Type: 
  Country: None (occurrence: None)
  Receive Date: 20120128
  Receipt Date: 20110608
  Transmission Date: 20120608
  Serious: No
  Sender: FDA-Public Use
  Company Number: US-ABBOTT-11P-163-0731023-00

PATIENT
  Age: 36 Year
  Sex: Female

DRUGS (10)
  1. TOPAMAX [Concomitant]
     Indication: HEADACHE
  2. SUCRALFATE [Concomitant]
     Indication: GASTRITIS PROPHYLAXIS
  3. HUMIRA [Suspect]
     Indication: ANKYLOSING SPONDYLITIS
     Dates: start: 20110219
  4. NORCO [Concomitant]
     Indication: INSOMNIA
     Dosage: 1 TO 2 TABS, AS NEEDED
  5. OMEPRAZOLE [Concomitant]
     Indication: PRODUCT USED FOR UNKNOWN INDICATION
  6. MELOXICAM [Concomitant]
     Indication: PRODUCT USED FOR UNKNOWN INDICATION
  7. TRAMADOL HCL [Concomitant]
     Indication: PRODUCT USED FOR UNKNOWN INDICATION
  8. ALBUTEROL [Concomitant]
     Indication: ASTHMA
  9. CALCIUM/VIT D [Concomitant]
     Indication: PRODUCT USED FOR UNKNOWN INDICATION
  10. FLEXERIL [Concomitant]
     Indication: MUSCLE SPASMS

REACTIONS (2)
  - ARTHRALGIA [None]
  - PAIN [None]
